FAERS Safety Report 17199312 (Version 1)
Quarter: 2019Q4

REPORT INFORMATION
  Report Type: Report from Study
  Country: None (occurrence: US)
  Receive Date: 20191225
  Receipt Date: 20191225
  Transmission Date: 20200122
  Serious: Yes (Other)
  Sender: FDA-Public Use
  Company Number: US-ABBVIE-19K-163-3163104-00

PATIENT
  Age: 74 Year
  Sex: Male

DRUGS (5)
  1. IMBRUVICA [Suspect]
     Active Substance: IBRUTINIB
     Indication: B-CELL SMALL LYMPHOCYTIC LYMPHOMA
     Dosage: 210 MG, QD
     Route: 048
     Dates: start: 20190311, end: 20190409
  2. IMBRUVICA [Suspect]
     Active Substance: IBRUTINIB
     Dosage: 350 MG, QD
     Route: 048
     Dates: start: 20190607
  3. IMBRUVICA [Suspect]
     Active Substance: IBRUTINIB
     Dosage: 280 MG, QD
     Route: 048
     Dates: start: 20190410, end: 20190609
  4. IMBRUVICA [Suspect]
     Active Substance: IBRUTINIB
     Dosage: 350 MG, QD
     Route: 048
     Dates: start: 20190521
  5. IMBRUVICA [Suspect]
     Active Substance: IBRUTINIB
     Route: 048
     Dates: start: 20190308

REACTIONS (1)
  - Knee operation [Recovering/Resolving]

NARRATIVE: CASE EVENT DATE: 20191010
